FAERS Safety Report 4831100-X (Version None)
Quarter: 2005Q4

REPORT INFORMATION
  Report Type: 
  Country: None (occurrence: None)
  Receive Date: 20051118
  Receipt Date: 20051107
  Transmission Date: 20060501
  Serious: Yes (Other)
  Sender: FDA-Public Use
  Company Number: FR-ABBOTT-05P-056-0316658-00

PATIENT

DRUGS (1)
  1. MICROPAKINE [Suspect]
     Indication: CONVULSION IN CHILDHOOD
     Route: 048

REACTIONS (1)
  - EPILEPSY [None]
